FAERS Safety Report 20371789 (Version 2)
Quarter: 2022Q1

REPORT INFORMATION
  Report Type: Spontaneous
  Country: FR (occurrence: FR)
  Receive Date: 20220124
  Receipt Date: 20220207
  Transmission Date: 20220423
  Serious: Yes (Other)
  Sender: FDA-Public Use
  Company Number: FR-FERRINGPH-2022FE00241

PATIENT
  Age: 70 Year
  Sex: Female

DRUGS (2)
  1. PICOPREP [Suspect]
     Active Substance: ANHYDROUS CITRIC ACID\MAGNESIUM OXIDE\SODIUM PICOSULFATE
     Indication: Bowel preparation
     Dosage: 2 SACHETS
     Route: 048
     Dates: start: 20220112, end: 20220113
  2. LEVOTHYROXINE [Concomitant]
     Active Substance: LEVOTHYROXINE
     Indication: Hypothyroidism
     Dosage: 20 DROPS, DAILY
     Dates: start: 2016

REACTIONS (9)
  - Hallucination, visual [Recovered/Resolved]
  - Hallucination, visual [Recovered/Resolved]
  - Oral discomfort [Recovered/Resolved]
  - Paraesthesia oral [Recovered/Resolved]
  - Headache [Recovered/Resolved]
  - Vomiting [Recovered/Resolved]
  - Diarrhoea [Unknown]
  - Incorrect dose administered [Recovered/Resolved]
  - Product label issue [Unknown]

NARRATIVE: CASE EVENT DATE: 20220112
